FAERS Safety Report 25809268 (Version 1)
Quarter: 2025Q3

REPORT INFORMATION
  Report Type: Spontaneous
  Country: US (occurrence: US)
  Receive Date: 20250916
  Receipt Date: 20250916
  Transmission Date: 20251020
  Serious: No
  Sender: MERCK SHARP & DOHME LLC
  Company Number: US-009507513-2322859

PATIENT
  Age: 14 Year
  Sex: Female

DRUGS (2)
  1. VORINOSTAT [Suspect]
     Active Substance: VORINOSTAT
     Indication: T-cell type acute leukaemia
     Route: 065
  2. DECITABINE [Concomitant]
     Active Substance: DECITABINE
     Indication: T-cell type acute leukaemia

REACTIONS (1)
  - Product use in unapproved indication [Unknown]
